FAERS Safety Report 6830381-0 (Version None)
Quarter: 2010Q3

REPORT INFORMATION
  Report Type: 
  Country: None (occurrence: None)
  Receive Date: 20100712
  Receipt Date: 20100630
  Transmission Date: 20110219
  Serious: No
  Sender: FDA-Public Use
  Company Number: US-BIOGENIDEC-2010BI022517

PATIENT
  Sex: Female

DRUGS (2)
  1. TYSABRI [Suspect]
     Indication: MULTIPLE SCLEROSIS
     Route: 042
     Dates: start: 20091203
  2. PAXIL [Concomitant]
     Indication: DEPRESSION

REACTIONS (3)
  - ASTHENIA [None]
  - INCREASED TENDENCY TO BRUISE [None]
  - MEMORY IMPAIRMENT [None]
